FAERS Safety Report 10633330 (Version 1)
Quarter: 2014Q4

REPORT INFORMATION
  Report Type: Spontaneous
  Country: US (occurrence: US)
  Receive Date: 20141205
  Receipt Date: 20141205
  Transmission Date: 20150529
  Serious: No
  Sender: FDA-Public Use
  Company Number: US-BRISTOL-MYERS SQUIBB COMPANY-20005849

PATIENT

DRUGS (2)
  1. EXENATIDE 10MCG PEN DISPOSABLE [Concomitant]
  2. EXENATIDE [Suspect]
     Active Substance: EXENATIDE

REACTIONS (1)
  - Liver function test abnormal [Unknown]
